FAERS Safety Report 21233895 (Version 8)
Quarter: 2022Q3

REPORT INFORMATION
  Report Type: Report from Study
  Country: CN (occurrence: None)
  Receive Date: 20220819
  Receipt Date: 20220929
  Transmission Date: 20221026
  Serious: Yes (Hospitalization)
  Sender: FDA-Public Use
  Company Number: CN-ROCHE-3086770

PATIENT
  Sex: Male
  Weight: 90 kg

DRUGS (5)
  1. TIRAGOLUMAB [Suspect]
     Active Substance: TIRAGOLUMAB
     Indication: Small cell lung cancer
     Dosage: DATE OF MOST RECENT DOSE OF TIRAGOLIZUMAB/PLACEBO PRIOR TO AE 17/MAY/2022.
     Route: 042
     Dates: start: 20220329
  2. ATEZOLIZUMAB [Suspect]
     Active Substance: ATEZOLIZUMAB
     Indication: Small cell lung cancer
     Dosage: DATE OF MOST RECENT DOSE OF ATEZOLIZUMAB PRIOR TO AE 17/MAY/2022.
     Route: 041
     Dates: start: 20220329
  3. MANNITOL [Concomitant]
     Active Substance: MANNITOL
     Dates: start: 20220606, end: 20220609
  4. MEGESTROL ACETATE [Concomitant]
     Active Substance: MEGESTROL ACETATE
     Dates: start: 20220811, end: 20220818
  5. ZOPICLONE [Concomitant]
     Active Substance: ZOPICLONE
     Dates: start: 20220816, end: 20220818

REACTIONS (3)
  - Endocrine toxicity [Not Recovered/Not Resolved]
  - Pneumonia [Not Recovered/Not Resolved]
  - Hypothyroidism [Recovered/Resolved]

NARRATIVE: CASE EVENT DATE: 20220419
